FAERS Safety Report 15610046 (Version 2)
Quarter: 2018Q4

REPORT INFORMATION
  Report Type: Report from Study
  Country: None (occurrence: CZ)
  Receive Date: 20181113
  Receipt Date: 20181114
  Transmission Date: 20190205
  Serious: Yes (Hospitalization, Other)
  Sender: FDA-Public Use
  Company Number: CZ-ABBVIE-18K-217-2549826-00

PATIENT
  Age: 47 Year
  Sex: Male

DRUGS (1)
  1. HUMIRA [Suspect]
     Active Substance: ADALIMUMAB
     Indication: PSORIATIC ARTHROPATHY
     Route: 058
     Dates: start: 20150811, end: 20180620

REACTIONS (5)
  - Bursitis [Recovered/Resolved]
  - Joint effusion [Recovered/Resolved]
  - Cardiovascular disorder [Unknown]
  - Scar excision [Recovered/Resolved]
  - Arthropathy [Unknown]

NARRATIVE: CASE EVENT DATE: 20180602
